FAERS Safety Report 24378462 (Version 1)
Quarter: 2024Q3

REPORT INFORMATION
  Report Type: Other
  Country: CA (occurrence: CA)
  Receive Date: 20240930
  Receipt Date: 20240930
  Transmission Date: 20241017
  Serious: Yes (Other)
  Sender: APOTEX
  Company Number: CA-APOTEX-2024AP011273

PATIENT
  Age: 71 Year
  Sex: Female
  Weight: 62 kg

DRUGS (6)
  1. EZETIMIBE [Suspect]
     Active Substance: EZETIMIBE
     Indication: Blood triglycerides increased
     Dosage: 10 MILLIGRAM, QD
     Route: 048
  2. SILIQ [Suspect]
     Active Substance: BRODALUMAB
     Indication: Psoriasis
     Dosage: 210 MILLIGRAM, Q.WK.
     Route: 058
  3. SILIQ [Suspect]
     Active Substance: BRODALUMAB
     Dosage: 210 MILLIGRAM, Q.O.WK., 373 UNIT UNSPECIFIED
     Route: 058
  4. SYNTHROID [Concomitant]
     Active Substance: LEVOTHYROXINE SODIUM
     Indication: Product used for unknown indication
     Dosage: 25 MICROGRAM
     Route: 065
  5. ROSUVASTATIN [Concomitant]
     Active Substance: ROSUVASTATIN\ROSUVASTATIN CALCIUM
     Indication: Product used for unknown indication
     Dosage: 10 MILLIGRAM, QD
     Route: 048
  6. WARFARIN [Concomitant]
     Active Substance: WARFARIN
     Indication: Product used for unknown indication
     Dosage: 6 MILLIGRAM
     Route: 065

REACTIONS (3)
  - Rheumatoid arthritis [Not Recovered/Not Resolved]
  - Loss of personal independence in daily activities [Not Recovered/Not Resolved]
  - Arthralgia [Not Recovered/Not Resolved]
